FAERS Safety Report 8232909-5 (Version None)
Quarter: 2012Q1

REPORT INFORMATION
  Report Type: 
  Country: None (occurrence: None)
  Receive Date: 20120324
  Receipt Date: 20120321
  Transmission Date: 20120608
  Serious: Yes (Other)
  Sender: FDA-Public Use
  Company Number: PHEH2012US004589

PATIENT
  Sex: Female
  Weight: 97.7 kg

DRUGS (6)
  1. COMBIPATCH [Suspect]
     Dosage: 1 DF, QW2
  2. COMBIPATCH [Suspect]
     Dosage: 1 DF, QW2
     Route: 062
     Dates: start: 20110923, end: 20120306
  3. COMBIPATCH [Suspect]
     Dosage: 0.05/0.25 MG
     Route: 062
  4. CALCIUM W/MAGNESIUM [Concomitant]
     Dosage: UNK UKN, UNK
  5. FISH OIL [Concomitant]
     Dosage: UNK UKN, UNK
  6. MULTIVITAMIN PREPARATIONS WITH OR W/O MINERAL [Concomitant]
     Dosage: UNK UKN, UNK

REACTIONS (4)
  - PRODUCT ADHESION ISSUE [None]
  - CERVICAL POLYP [None]
  - POSTMENOPAUSAL HAEMORRHAGE [None]
  - MENSTRUATION IRREGULAR [None]
